FAERS Safety Report 5851144-9 (Version None)
Quarter: 2008Q3

REPORT INFORMATION
  Report Type: 
  Country: None (occurrence: None)
  Receive Date: 20080820
  Receipt Date: 20080813
  Transmission Date: 20090109
  Serious: Yes (Other)
  Sender: FDA-Public Use
  Company Number: B0533737A

PATIENT
  Age: 30 Year
  Sex: Female

DRUGS (1)
  1. LAMOTRIGINE [Suspect]
     Indication: BIPOLAR I DISORDER
     Route: 065
     Dates: start: 20060201

REACTIONS (17)
  - AFFECT LABILITY [None]
  - COUGH [None]
  - DERMATITIS CONTACT [None]
  - DRUG RASH WITH EOSINOPHILIA AND SYSTEMIC SYMPTOMS [None]
  - EOSINOPHIL COUNT INCREASED [None]
  - GENITAL ULCERATION [None]
  - IMMUNE SYSTEM DISORDER [None]
  - LIP SWELLING [None]
  - MALAISE [None]
  - MOUTH ULCERATION [None]
  - PHARYNGITIS [None]
  - PYREXIA [None]
  - RASH [None]
  - RASH MACULO-PAPULAR [None]
  - RASH PRURITIC [None]
  - SUICIDAL IDEATION [None]
  - UPPER RESPIRATORY TRACT INFECTION [None]
